FAERS Safety Report 4587254-6 (Version None)
Quarter: 2005Q1

REPORT INFORMATION
  Report Type: 
  Country: None (occurrence: None)
  Receive Date: 20050218
  Receipt Date: 20050212
  Transmission Date: 20050727
  Serious: Yes (Death)
  Sender: FDA-Public Use
  Company Number: GB-GLAXOSMITHKLINE-B0371314A

PATIENT
  Age: 70 Year
  Sex: Male

DRUGS (1)
  1. ROPINIROLE HYDROCHLORIDE [Suspect]
     Indication: PARKINSON'S DISEASE
     Dosage: 5MG PER DAY
     Route: 048
     Dates: start: 20000601, end: 20030101

REACTIONS (1)
  - PANCREATIC CARCINOMA [None]
